FAERS Safety Report 12694907 (Version 3)
Quarter: 2020Q4

REPORT INFORMATION
  Report Type: Spontaneous
  Country: JP (occurrence: JP)
  Receive Date: 20160829
  Receipt Date: 20201001
  Transmission Date: 20210113
  Serious: Yes (Other)
  Sender: FDA-Public Use
  Company Number: JP-JNJFOC-20160818339

PATIENT
  Age: 16 Year
  Sex: Male

DRUGS (4)
  1. REMICADE [Suspect]
     Active Substance: INFLIXIMAB
     Indication: CROHN^S DISEASE
     Dosage: IN APR (UNSPECIFIED YEAR)
     Route: 042
  2. REMICADE [Suspect]
     Active Substance: INFLIXIMAB
     Dosage: IN DEC (UNSPECIFIED YEAR)
     Route: 042
  3. REMICADE [Suspect]
     Active Substance: INFLIXIMAB
     Route: 042
  4. MESALAZINE [Concomitant]
     Active Substance: MESALAMINE
     Route: 065

REACTIONS (2)
  - Hypersensitivity vasculitis [Recovered/Resolved]
  - Therapeutic product effect decreased [Unknown]
